FAERS Safety Report 9931745 (Version 1)
Quarter: 2014Q1

REPORT INFORMATION
  Report Type: Spontaneous
  Country: US (occurrence: None)
  Receive Date: 20140227
  Receipt Date: 20140227
  Transmission Date: 20141002
  Serious: Yes (Other)
  Sender: FDA-Public Use
  Company Number: None

PATIENT
  Age: 67 Year
  Sex: Female
  Weight: 102.06 kg

DRUGS (1)
  1. METHOTREXATE [Suspect]
     Indication: PALINDROMIC RHEUMATISM
     Dosage: 5 PILLS 2X/DAY ONCE A WEEK  ONE DAY WEEKLY
     Route: 048
     Dates: start: 20121203, end: 20130522

REACTIONS (8)
  - Nausea [None]
  - Dizziness [None]
  - Malaise [None]
  - Bronchitis [None]
  - Cough [None]
  - Dyspnoea [None]
  - Pneumonia [None]
  - Lung disorder [None]
